FAERS Safety Report 10025208 (Version 1)
Quarter: 2014Q1

REPORT INFORMATION
  Report Type: Spontaneous
  Country: US (occurrence: None)
  Receive Date: 20140319
  Receipt Date: 20140319
  Transmission Date: 20141002
  Serious: Yes (Hospitalization, Other)
  Sender: FDA-Public Use
  Company Number: None

PATIENT
  Age: 30 Year
  Sex: Male
  Weight: 77.7 kg

DRUGS (2)
  1. ZOLPIDEM [Suspect]
     Indication: DEPRESSION
     Route: 048
     Dates: start: 20131217, end: 20140224
  2. ARIPIPRAZOLE [Suspect]
     Indication: DEPRESSION
     Route: 048
     Dates: start: 20140206, end: 20140224

REACTIONS (3)
  - Overdose [None]
  - Suicide attempt [None]
  - Impulsive behaviour [None]
